FAERS Safety Report 9871291 (Version 1)
Quarter: 2014Q1

REPORT INFORMATION
  Report Type: Spontaneous
  Country: GB (occurrence: GB)
  Receive Date: 20140205
  Receipt Date: 20140205
  Transmission Date: 20141002
  Serious: Yes (Disabling)
  Sender: FDA-Public Use
  Company Number: GB-GLAXOSMITHKLINE-B0964472A

PATIENT
  Age: 68 Year
  Sex: Female
  Weight: 136 kg

DRUGS (11)
  1. SERETIDE [Suspect]
     Indication: CHRONIC OBSTRUCTIVE PULMONARY DISEASE
     Route: 055
     Dates: start: 20131202, end: 20140101
  2. VENTOLIN [Concomitant]
     Indication: CHRONIC OBSTRUCTIVE PULMONARY DISEASE
     Route: 055
  3. RAMIPRIL [Concomitant]
     Route: 048
  4. SIMVASTATIN [Concomitant]
     Route: 048
  5. BENDROFLUMETHIAZIDE [Concomitant]
     Route: 048
  6. FELODIPINE [Concomitant]
     Route: 048
  7. GLICLAZIDE [Concomitant]
     Dosage: 80MG PER DAY
     Route: 048
  8. METFORMIN [Concomitant]
     Dosage: 2G PER DAY
     Route: 048
  9. OMEPRAZOLE [Concomitant]
     Dosage: 20MG PER DAY
     Route: 048
  10. CARBOCISTEINE [Concomitant]
     Dosage: 1125MG PER DAY
     Route: 048
  11. UNIPHYLLIN [Concomitant]
     Dosage: 400MG PER DAY
     Route: 048

REACTIONS (3)
  - Pain [Recovering/Resolving]
  - Joint swelling [Recovering/Resolving]
  - Myalgia [Recovering/Resolving]
